FAERS Safety Report 15596638 (Version 1)
Quarter: 2018Q4

REPORT INFORMATION
  Report Type: Spontaneous
  Country: CN (occurrence: CN)
  Receive Date: 20181107
  Receipt Date: 20181107
  Transmission Date: 20190205
  Serious: Yes (Death)
  Sender: FDA-Public Use
  Company Number: CN-BAYER-2018-201677

PATIENT
  Age: 47 Year
  Sex: Male
  Weight: 65 kg

DRUGS (4)
  1. BAYASPIRIN 100 MG [Suspect]
     Active Substance: ASPIRIN
     Indication: THROMBOLYSIS
     Dosage: 300 MG, QD
     Route: 048
     Dates: start: 20180901, end: 20180901
  2. HEPARIN SODIUM. [Suspect]
     Active Substance: HEPARIN SODIUM
     Indication: THROMBOLYSIS
     Dosage: 3000 U, QD
     Route: 042
     Dates: start: 20180901, end: 20180901
  3. TNKASE [Suspect]
     Active Substance: TENECTEPLASE
     Indication: THROMBOLYSIS
     Dosage: 16 MG, QD
     Route: 042
     Dates: start: 20180901, end: 20180901
  4. PLAVIX [Suspect]
     Active Substance: CLOPIDOGREL BISULFATE
     Indication: THROMBOLYSIS
     Dosage: 300 MG, QD
     Route: 048
     Dates: start: 20180901, end: 20180901

REACTIONS (2)
  - Cardiac failure [Fatal]
  - Gastrointestinal haemorrhage [Fatal]

NARRATIVE: CASE EVENT DATE: 20180902
